FAERS Safety Report 23273351 (Version 2)
Quarter: 2023Q4

REPORT INFORMATION
  Report Type: Spontaneous
  Country: BR (occurrence: BR)
  Receive Date: 20231207
  Receipt Date: 20231219
  Transmission Date: 20240110
  Serious: Yes (Other)
  Sender: FDA-Public Use
  Company Number: BR-009507513-2312BRA000974

PATIENT
  Age: 38 Year
  Sex: Female

DRUGS (5)
  1. PEMBROLIZUMAB [Suspect]
     Active Substance: PEMBROLIZUMAB
     Indication: Triple negative breast cancer
     Dosage: FOR 8 CYCLES
  2. CARBOPLATIN [Suspect]
     Active Substance: CARBOPLATIN
     Indication: Triple negative breast cancer
     Dosage: AREA UNDER THE CURVE (AUC) 2, WEEKLY
  3. TAXOL [Suspect]
     Active Substance: PACLITAXEL
     Indication: Triple negative breast cancer
     Dosage: 80 MILLIGRAM/SQ. METER FOR 12 CYCLES
  4. DOXORUBICIN [Suspect]
     Active Substance: DOXORUBICIN
     Indication: Triple negative breast cancer
     Dosage: FOR 4 CYCLES, EVERY THREE WEEKS
  5. CYCLOPHOSPHAMIDE [Suspect]
     Active Substance: CYCLOPHOSPHAMIDE
     Indication: Triple negative breast cancer
     Dosage: FOR 4 CYCLES, EVERY 3 WEEKS

REACTIONS (6)
  - Febrile neutropenia [Unknown]
  - Anaemia [Unknown]
  - Myelosuppression [Unknown]
  - Breast conserving surgery [Unknown]
  - Diarrhoea [Recovered/Resolved]
  - Product use issue [Unknown]
